FAERS Safety Report 6935662-8 (Version None)
Quarter: 2010Q3

REPORT INFORMATION
  Report Type: 
  Country: None (occurrence: None)
  Receive Date: 20100823
  Receipt Date: 20100813
  Transmission Date: 20110219
  Serious: Yes (Hospitalization, Other)
  Sender: FDA-Public Use
  Company Number: US-JNJFOC-20091007884

PATIENT
  Sex: Male
  Weight: 79.38 kg

DRUGS (11)
  1. DURAGESIC-100 [Suspect]
     Indication: BACK PAIN
     Route: 062
  2. DURAGESIC-100 [Suspect]
     Route: 062
  3. DURAGESIC-100 [Suspect]
     Route: 062
  4. DURAGESIC-100 [Suspect]
     Dosage: 25 UG/HR NDC #50458-089
     Route: 062
  5. DURAGESIC-100 [Suspect]
     Route: 062
  6. DURAGESIC-100 [Suspect]
     Dosage: NDC 50458-094
     Route: 062
  7. OXYCODONE [Concomitant]
     Indication: PAIN
     Route: 048
  8. NEURONTIN [Concomitant]
     Indication: PAIN
     Route: 048
  9. NORTRIPTYLINE HCL [Concomitant]
     Indication: PAIN
     Route: 048
  10. FOLIC ACID [Concomitant]
     Route: 048
  11. CITALOPRAM HYDROBROMIDE [Concomitant]
     Route: 048

REACTIONS (9)
  - BACK PAIN [None]
  - DEPRESSION [None]
  - DRUG DISPENSING ERROR [None]
  - DYSPHEMIA [None]
  - EXPIRED DRUG ADMINISTERED [None]
  - HYPERTENSION [None]
  - PRODUCT ADHESION ISSUE [None]
  - TREMOR [None]
  - WRONG TECHNIQUE IN DRUG USAGE PROCESS [None]
